FAERS Safety Report 15538307 (Version 1)
Quarter: 2018Q4

REPORT INFORMATION
  Report Type: Spontaneous
  Country: HU (occurrence: HU)
  Receive Date: 20181022
  Receipt Date: 20181022
  Transmission Date: 20190205
  Serious: Yes (Hospitalization, Other)
  Sender: FDA-Public Use
  Company Number: HU-PURDUE-GBR-2018-0060527

PATIENT
  Age: 14 Year
  Sex: Female

DRUGS (1)
  1. NON-PMN THEOPHYLLINE [Suspect]
     Active Substance: THEOPHYLLINE ANHYDROUS
     Indication: SUICIDE ATTEMPT
     Dosage: LARGE NUMBER OF TABLETS
     Route: 065

REACTIONS (6)
  - Suicide attempt [Recovered/Resolved]
  - Tachycardia [Recovered/Resolved]
  - Intentional overdose [Recovered/Resolved]
  - Toxicity to various agents [Recovered/Resolved]
  - Vomiting [Recovered/Resolved]
  - Agitation [Recovered/Resolved]
